FAERS Safety Report 17097024 (Version 1)
Quarter: 2019Q4

REPORT INFORMATION
  Report Type: Spontaneous
  Country: CA (occurrence: CA)
  Receive Date: 20191202
  Receipt Date: 20191202
  Transmission Date: 20200122
  Serious: Yes (Other)
  Sender: FDA-Public Use
  Company Number: CA-GLAXOSMITHKLINE-CA2019AMR215135

PATIENT
  Sex: Female

DRUGS (2)
  1. BENLYSTA [Suspect]
     Active Substance: BELIMUMAB
     Dosage: 400 MG
  2. BENLYSTA [Suspect]
     Active Substance: BELIMUMAB
     Indication: SYSTEMIC LUPUS ERYTHEMATOSUS
     Dosage: 120 MG

REACTIONS (7)
  - Alopecia [Unknown]
  - Dry skin [Unknown]
  - Systemic lupus erythematosus [Unknown]
  - Dermatitis [Unknown]
  - Renal impairment [Unknown]
  - Erythema [Unknown]
  - Blood pressure increased [Unknown]
